FAERS Safety Report 4727558-7 (Version None)
Quarter: 2005Q3

REPORT INFORMATION
  Report Type: 
  Country: None (occurrence: None)
  Receive Date: 20050727
  Receipt Date: 20050727
  Transmission Date: 20060218
  Serious: Yes (Life-Threatening, Hospitalization)
  Sender: FDA-Public Use
  Company Number: None

PATIENT
  Age: 42 Year
  Sex: Male
  Weight: 62 kg

DRUGS (8)
  1. DACARBAZINE [Suspect]
     Indication: RESPIRATORY DISTRESS
     Dosage: 600 MG ONCE PR
     Dates: start: 20050511
  2. GRANISETRON [Concomitant]
  3. BLEOMYCIN [Concomitant]
  4. DOXORUBICIN HCL [Concomitant]
  5. VINBLASTINE [Concomitant]
  6. ZANTAC 300 [Concomitant]
  7. LASIX [Concomitant]
  8. ROBITUSSIN [Concomitant]

REACTIONS (9)
  - COUGH [None]
  - DYSPNOEA [None]
  - HYPOTENSION [None]
  - INFUSION RELATED REACTION [None]
  - OXYGEN SATURATION DECREASED [None]
  - RESPIRATORY DISORDER [None]
  - TACHYCARDIA [None]
  - TACHYPNOEA [None]
  - WHEEZING [None]
